FAERS Safety Report 8201518-6 (Version None)
Quarter: 2012Q1

REPORT INFORMATION
  Report Type: 
  Country: None (occurrence: None)
  Receive Date: 20120312
  Receipt Date: 20120305
  Transmission Date: 20120608
  Serious: Yes (Other)
  Sender: FDA-Public Use
  Company Number: US-GLAXOSMITHKLINE-A0968630A

PATIENT
  Age: 44 Year
  Sex: Female

DRUGS (2)
  1. FLOVENT [Suspect]
     Indication: ASTHMA
     Route: 065
  2. PROVENTIL [Concomitant]
     Route: 055

REACTIONS (4)
  - ASTHMA [None]
  - COUGH [None]
  - NASOPHARYNGITIS [None]
  - CHEST DISCOMFORT [None]
